FAERS Safety Report 19012411 (Version 1)
Quarter: 2021Q1

REPORT INFORMATION
  Report Type: Spontaneous
  Country: US (occurrence: US)
  Receive Date: 20210316
  Receipt Date: 20210316
  Transmission Date: 20210420
  Serious: Yes (Hospitalization)
  Sender: FDA-Public Use
  Company Number: None

PATIENT
  Age: 62 Year
  Sex: Female

DRUGS (15)
  1. CRESTOR [Concomitant]
     Active Substance: ROSUVASTATIN CALCIUM
     Dates: start: 20210315
  2. BACLOFEN. [Concomitant]
     Active Substance: BACLOFEN
     Dates: start: 20200709
  3. CYMBALTA [Concomitant]
     Active Substance: DULOXETINE HYDROCHLORIDE
     Dates: start: 20210315
  4. CYMBALTA [Concomitant]
     Active Substance: DULOXETINE HYDROCHLORIDE
     Dates: start: 20210315
  5. VALIUM [Concomitant]
     Active Substance: DIAZEPAM
     Dates: start: 20210315
  6. GLATIRAMER [Suspect]
     Active Substance: GLATIRAMER
     Indication: MULTIPLE SCLEROSIS
     Dosage: ?          OTHER FREQUENCY:WEEKLY;?
     Route: 058
     Dates: start: 20190201
  7. ACIPHEX [Concomitant]
     Active Substance: RABEPRAZOLE SODIUM
     Dates: start: 20210315
  8. BACLOFEN. [Concomitant]
     Active Substance: BACLOFEN
     Dates: start: 20210315
  9. BUSPIRONE [Concomitant]
     Active Substance: BUSPIRONE HYDROCHLORIDE
     Dates: start: 20210315
  10. ASPIRIN. [Concomitant]
     Active Substance: ASPIRIN
     Dates: start: 20210315
  11. BOTOX [Concomitant]
     Active Substance: ONABOTULINUMTOXINA
     Dates: start: 20210315
  12. ESTRADIOL. [Concomitant]
     Active Substance: ESTRADIOL
     Dates: start: 20210315
  13. XYZAL [Concomitant]
     Active Substance: LEVOCETIRIZINE DIHYDROCHLORIDE
     Dates: start: 20210315
  14. CLARITIN [Concomitant]
     Active Substance: LORATADINE
     Dates: start: 20210315
  15. LASIX [Concomitant]
     Active Substance: FUROSEMIDE
     Dates: start: 20210315

REACTIONS (6)
  - Spinal cord disorder [None]
  - Cerebrospinal fluid leakage [None]
  - Surgery [None]
  - Dysphagia [None]
  - Pharyngitis [None]
  - Laryngitis [None]

NARRATIVE: CASE EVENT DATE: 20210315
